FAERS Safety Report 15556919 (Version 1)
Quarter: 2018Q4

REPORT INFORMATION
  Report Type: Spontaneous
  Country: US (occurrence: US)
  Receive Date: 20181026
  Receipt Date: 20181026
  Transmission Date: 20190205
  Serious: Yes (Hospitalization)
  Sender: FDA-Public Use
  Company Number: US-MALLINCKRODT-T201804407

PATIENT
  Sex: Female

DRUGS (3)
  1. INFLUENZA VACCINE [Suspect]
     Active Substance: INFLUENZA VIRUS VACCINE
     Indication: PRODUCT USED FOR UNKNOWN INDICATION
     Dosage: UNK
     Route: 065
  2. FENTANYL TRANSDERMAL SYSTEM [Suspect]
     Active Substance: FENTANYL
     Indication: BACK PAIN
     Dosage: 25MCG, 1 PATCH EVERY 3 DAYS
     Route: 062
  3. FENTANYL TRANSDERMAL SYSTEM [Suspect]
     Active Substance: FENTANYL
     Indication: BACK PAIN
     Dosage: 12MCG PATCHES
     Route: 062

REACTIONS (11)
  - Dyspnoea [Recovered/Resolved]
  - Headache [Unknown]
  - Abdominal pain [Unknown]
  - Somnolence [Unknown]
  - Drug ineffective [Unknown]
  - Chest pain [Recovered/Resolved]
  - Hypertension [Unknown]
  - Pyrexia [Unknown]
  - Blood cholesterol abnormal [Unknown]
  - Nausea [Recovered/Resolved]
  - Malaise [Unknown]

NARRATIVE: CASE EVENT DATE: 2018
